APPROVED DRUG PRODUCT: CHLORZOXAZONE
Active Ingredient: CHLORZOXAZONE
Strength: 250MG
Dosage Form/Route: TABLET;ORAL
Application: A087981 | Product #001
Applicant: CHARTWELL RX SCIENCES LLC
Approved: Sep 20, 1983 | RLD: No | RS: No | Type: DISCN